FAERS Safety Report 16735159 (Version 1)
Quarter: 2019Q3

REPORT INFORMATION
  Report Type: Spontaneous
  Country: US (occurrence: US)
  Receive Date: 20190823
  Receipt Date: 20190823
  Transmission Date: 20191005
  Serious: No
  Sender: FDA-Public Use
  Company Number: US-009507513-1908USA003923

PATIENT
  Age: 34 Year
  Sex: Female

DRUGS (1)
  1. NEXPLANON [Suspect]
     Active Substance: ETONOGESTREL
     Dosage: 1 IMPLANT
     Dates: start: 20190502

REACTIONS (4)
  - Affect lability [Unknown]
  - Implant site pain [Recovered/Resolved]
  - Mood altered [Unknown]
  - Implant site pain [Recovered/Resolved]

NARRATIVE: CASE EVENT DATE: 20190502
